FAERS Safety Report 17963498 (Version 1)
Quarter: 2020Q2

REPORT INFORMATION
  Report Type: Report from Study
  Country: US (occurrence: US)
  Receive Date: 20200630
  Receipt Date: 20200630
  Transmission Date: 20200714
  Serious: Yes (Hospitalization)
  Sender: FDA-Public Use
  Company Number: US-BIOVITRUM-2020US0437

PATIENT
  Sex: Female

DRUGS (1)
  1. KINERET [Suspect]
     Active Substance: ANAKINRA
     Indication: BEHCET^S SYNDROME
     Route: 058

REACTIONS (21)
  - Blood potassium increased [Unknown]
  - Chills [Unknown]
  - Back pain [Unknown]
  - Vaginal ulceration [Recovering/Resolving]
  - Musculoskeletal stiffness [Unknown]
  - Joint noise [Unknown]
  - Arthralgia [Unknown]
  - Headache [Unknown]
  - Visual impairment [Unknown]
  - Neck pain [Unknown]
  - Off label use [Unknown]
  - Fatigue [Unknown]
  - Eye inflammation [Unknown]
  - Liver function test abnormal [Unknown]
  - Weight decreased [Unknown]
  - Musculoskeletal discomfort [Unknown]
  - Fall [Unknown]
  - Anaemia [Unknown]
  - Myalgia [Unknown]
  - Malaise [Unknown]
  - Dizziness [Unknown]
